FAERS Safety Report 18439131 (Version 4)
Quarter: 2020Q4

REPORT INFORMATION
  Report Type: Report from Study
  Country: BR (occurrence: BR)
  Receive Date: 20201028
  Receipt Date: 20201229
  Transmission Date: 20210114
  Serious: Yes (Death, Life-Threatening, Hospitalization, Other)
  Sender: FDA-Public Use
  Company Number: BR-GILEAD-2020-0490082

PATIENT
  Age: 55 Year
  Sex: Male
  Weight: 83 kg

DRUGS (17)
  1. ZOLPIDEM [Concomitant]
     Active Substance: ZOLPIDEM TARTRATE
  2. FUROSEMIDE. [Concomitant]
     Active Substance: FUROSEMIDE
  3. DEXAMETHASONE. [Concomitant]
     Active Substance: DEXAMETHASONE
  4. TOCILIZUMAB. [Suspect]
     Active Substance: TOCILIZUMAB
     Indication: COVID-19 PNEUMONIA
     Dosage: 00 ML) PRIOR TO ONSET OF
     Route: 042
     Dates: start: 20200722, end: 20200722
  5. PRECEDEX [Concomitant]
     Active Substance: DEXMEDETOMIDINE HYDROCHLORIDE
  6. AZITHROMYCIN ANHYDROUS. [Concomitant]
     Active Substance: AZITHROMYCIN ANHYDROUS
  7. OSELTAMIVIR [Concomitant]
     Active Substance: OSELTAMIVIR
  8. METOCLOPRAMIDE. [Concomitant]
     Active Substance: METOCLOPRAMIDE
  9. OXYGEN. [Concomitant]
     Active Substance: OXYGEN
  10. REMDESIVIR. [Suspect]
     Active Substance: REMDESIVIR
     Indication: COVID-19 PNEUMONIA
     Dosage: ONCE
     Route: 042
     Dates: start: 20200722, end: 20200722
  11. OMEPRAZOLE. [Concomitant]
     Active Substance: OMEPRAZOLE
  12. DIPYRONE [Concomitant]
     Active Substance: DIPYRONE
  13. MORPHINE [Concomitant]
     Active Substance: MORPHINE
  14. NORADRENALINE (NORPINEPHRINE) [Concomitant]
     Active Substance: NOREPINEPHRINE
  15. REMDESIVIR. [Suspect]
     Active Substance: REMDESIVIR
     Dosage: QD
     Route: 042
     Dates: start: 20200723, end: 20200731
  16. CEFTRIAXONE. [Concomitant]
     Active Substance: CEFTRIAXONE
  17. ENOXAPARIN [Concomitant]
     Active Substance: ENOXAPARIN

REACTIONS (5)
  - Atelectasis [Recovered/Resolved]
  - Respiratory failure [Not Recovered/Not Resolved]
  - Sepsis [Recovered/Resolved]
  - Pneumonia klebsiella [Fatal]
  - Post procedural haemorrhage [Recovered/Resolved]

NARRATIVE: CASE EVENT DATE: 20200808
